FAERS Safety Report 8599569-5 (Version None)
Quarter: 2012Q3

REPORT INFORMATION
  Report Type: 
  Country: None (occurrence: None)
  Receive Date: 20120816
  Receipt Date: 20120815
  Transmission Date: 20120928
  Serious: Yes (Other)
  Sender: FDA-Public Use
  Company Number: BR-BAYER-2012-011536

PATIENT
  Age: 22 Year
  Sex: Female

DRUGS (5)
  1. CLONAZEPAM [Concomitant]
     Dosage: 4 MG, BID
     Route: 048
     Dates: start: 20120119
  2. SERTRALINE HYDROCHLORIDE [Concomitant]
     Indication: ANXIETY
     Dosage: 150 MG, QD
     Route: 048
     Dates: start: 20120119
  3. SERTRALINE HYDROCHLORIDE [Concomitant]
     Indication: DEPRESSION
     Dosage: 150 MG, QD
     Route: 048
     Dates: start: 20120119
  4. CLONAZEPAM [Concomitant]
     Indication: DEPRESSION
     Dosage: 4 MG, BID
     Route: 048
     Dates: start: 20120119
  5. BETAFERON [Suspect]
     Indication: MULTIPLE SCLEROSIS
     Dosage: UNK
     Route: 058
     Dates: start: 20120125, end: 20120214

REACTIONS (7)
  - PYREXIA [None]
  - HYPOAESTHESIA [None]
  - MOBILITY DECREASED [None]
  - JOINT STIFFNESS [None]
  - MUSCLE RIGIDITY [None]
  - PAIN IN EXTREMITY [None]
  - DELIRIUM [None]
